FAERS Safety Report 5636403-7 (Version None)
Quarter: 2008Q1

REPORT INFORMATION
  Report Type: 
  Country: None (occurrence: None)
  Receive Date: 20080225
  Receipt Date: 20080122
  Transmission Date: 20080703
  Serious: No
  Sender: FDA-Public Use
  Company Number: A0698141A

PATIENT
  Age: 79 Year
  Sex: Female
  Weight: 57.7 kg

DRUGS (4)
  1. VERAMYST [Suspect]
     Dosage: 27.5MCG PER DAY
     Route: 045
     Dates: start: 20070901, end: 20070904
  2. FLONASE [Suspect]
     Route: 045
  3. METFORMIN HCL [Concomitant]
  4. LISINOPRIL AND HYDROCHLOROTHIAZIDE [Concomitant]

REACTIONS (9)
  - ACUTE SINUSITIS [None]
  - ANOSMIA [None]
  - DYSPHAGIA [None]
  - DYSPNOEA [None]
  - HYPERSENSITIVITY [None]
  - PHARYNGEAL OEDEMA [None]
  - PHARYNGITIS [None]
  - PHARYNGOLARYNGEAL PAIN [None]
  - THROAT TIGHTNESS [None]
